FAERS Safety Report 8571793-7 (Version None)
Quarter: 2012Q3

REPORT INFORMATION
  Report Type: 
  Country: None (occurrence: None)
  Receive Date: 20120806
  Receipt Date: 20120727
  Transmission Date: 20120928
  Serious: Yes (Hospitalization, Other)
  Sender: FDA-Public Use
  Company Number: US-009507513-1202USA02276

PATIENT

DRUGS (5)
  1. VITAMIN D [Concomitant]
     Indication: OSTEOPOROSIS
     Dosage: 400 IU, UNK
  2. FOSAMAX [Suspect]
     Indication: OSTEOPOROSIS
     Dosage: 5 MG, UNK
     Route: 048
     Dates: start: 20000718, end: 20001211
  3. FOSAMAX [Suspect]
     Indication: OSTEOPENIA
     Dosage: 10 MG, UNK
     Route: 048
     Dates: start: 20010219
  4. FOSAMAX [Suspect]
     Dosage: 70 MG, UNK
     Route: 048
     Dates: start: 20030101, end: 20080101
  5. CALCIUM (UNSPECIFIED) [Concomitant]
     Indication: OSTEOPOROSIS

REACTIONS (25)
  - SPINAL COLUMN STENOSIS [None]
  - BLADDER DISORDER [None]
  - PERIODONTITIS [None]
  - GINGIVITIS [None]
  - ARRHYTHMIA [None]
  - JAW DISORDER [None]
  - OSTEONECROSIS OF JAW [None]
  - HYPERLIPIDAEMIA [None]
  - FATIGUE [None]
  - CORONARY ARTERY DISEASE [None]
  - LOOSE TOOTH [None]
  - BONE LOSS [None]
  - TOOTH INFECTION [None]
  - CARDIAC MURMUR [None]
  - INAPPROPRIATE SCHEDULE OF DRUG ADMINISTRATION [None]
  - GINGIVAL DISORDER [None]
  - TOOTH FRACTURE [None]
  - HYPERTENSION [None]
  - CHRONIC OBSTRUCTIVE PULMONARY DISEASE [None]
  - BREAST CANCER STAGE II [None]
  - ASTHMA [None]
  - UTERINE DISORDER [None]
  - PURULENT DISCHARGE [None]
  - SOFT TISSUE HAEMORRHAGE [None]
  - TOOTH DISORDER [None]
